FAERS Safety Report 5499685-0 (Version None)
Quarter: 2007Q4

REPORT INFORMATION
  Report Type: 
  Country: None (occurrence: None)
  Receive Date: 20071026
  Receipt Date: 20071016
  Transmission Date: 20080405
  Serious: Yes (Hospitalization)
  Sender: FDA-Public Use
  Company Number: JP-PFIZER INC-2007078963

PATIENT
  Sex: Female
  Weight: 47 kg

DRUGS (6)
  1. FARMORUBICIN RD [Suspect]
     Indication: BREAST CANCER
     Dosage: DAILY DOSE:120MG-FREQ:EVERY DAYS
     Route: 042
  2. FARMORUBICIN RD [Suspect]
     Dosage: DAILY DOSE:90-FREQ:EVERY DAYS
     Route: 042
  3. ENDOXAN [Suspect]
     Indication: BREAST CANCER
     Dosage: DAILY DOSE:900MG-FREQ:EVERY DAYS
     Route: 042
  4. ENDOXAN [Suspect]
     Dosage: DAILY DOSE:700MG-FREQ:EVERY DAYS
     Route: 042
  5. GRAN [Suspect]
     Dosage: DAILY DOSE:75MCG-FREQ:EVERY DAYS
     Route: 058
  6. MAXIPIME [Suspect]
     Dosage: DAILY DOSE:2000MG
     Route: 042
     Dates: start: 20070917, end: 20070919

REACTIONS (3)
  - FEBRILE NEUTROPENIA [None]
  - INTERSTITIAL LUNG DISEASE [None]
  - NEUTROPHIL COUNT DECREASED [None]
